FAERS Safety Report 10680169 (Version 3)
Quarter: 2015Q1

REPORT INFORMATION
  Report Type: Spontaneous
  Country: HU (occurrence: HU)
  Receive Date: 20141229
  Receipt Date: 20150218
  Transmission Date: 20150720
  Serious: Yes (Other)
  Sender: FDA-Public Use
  Company Number: HU-PFIZER INC-2014322974

PATIENT
  Age: 72 Year
  Sex: Female
  Weight: 85 kg

DRUGS (5)
  1. CARDURA XL [Suspect]
     Active Substance: DOXAZOSIN MESYLATE
     Indication: HYPERTENSION
     Dosage: 1 DF, 1X/DAY
     Dates: start: 20140919
  2. COVEREX-AS [Concomitant]
     Indication: HYPERTENSION
     Dosage: UNK, IN THE EVENING
  3. CORTIRON [Concomitant]
     Indication: ARRHYTHMIA
     Dosage: UNK
  4. MINIPRESS [Concomitant]
     Active Substance: PRAZOSIN HYDROCHLORIDE
     Indication: HYPERTENSION
     Dosage: UNK, IN THE MORNING AND EVENING
  5. COVEREX KOMB [Concomitant]
     Indication: HYPERTENSION
     Dosage: UNK, IN THE MORNING

REACTIONS (5)
  - Musculoskeletal disorder [Unknown]
  - Pain in extremity [Unknown]
  - Blood pressure inadequately controlled [Unknown]
  - Blood pressure decreased [Unknown]
  - Hearing impaired [Unknown]
